FAERS Safety Report 9928934 (Version 1)
Quarter: 2014Q1

REPORT INFORMATION
  Report Type: Report from Study
  Country: GB (occurrence: GB)
  Receive Date: 20140227
  Receipt Date: 20140227
  Transmission Date: 20141002
  Serious: Yes (Death)
  Sender: FDA-Public Use
  Company Number: GB-BAXTER-2014BAX008549

PATIENT
  Age: 5 Month
  Sex: 0

DRUGS (2)
  1. CEPROTIN 1000 IU [Suspect]
     Indication: PROTEIN C DEFICIENCY
     Route: 042
  2. CEPROTIN 1000 IU [Suspect]
     Route: 058
     Dates: start: 2000

REACTIONS (3)
  - Disease complication [Fatal]
  - Hydrocephalus [Unknown]
  - Incorrect route of drug administration [Unknown]
